FAERS Safety Report 4362826-2 (Version None)
Quarter: 2004Q2

REPORT INFORMATION
  Report Type: 
  Country: None (occurrence: None)
  Receive Date: 20040518
  Receipt Date: 20040506
  Transmission Date: 20050107
  Serious: Yes (Other)
  Sender: FDA-Public Use
  Company Number: US-JNJFOC-20040501453

PATIENT
  Age: 40 Year
  Sex: Female

DRUGS (6)
  1. DURAGESIC [Suspect]
     Indication: PAIN
     Dosage: 75 UG/HR, 1 IN 48 HOUR, TRANSDERMAL
     Route: 062
     Dates: start: 20030901
  2. XANAX [Concomitant]
  3. TIZANIDINE (TIZANIDINE) [Concomitant]
  4. HYDROCODONE (HYDROCODONE) [Concomitant]
  5. TRAZADONE (TRAZODONE) [Concomitant]
  6. CLONIPIN (CLONAZEPAM) [Concomitant]

REACTIONS (1)
  - MEDICATION ERROR [None]
